FAERS Safety Report 7817028-1 (Version None)
Quarter: 2011Q4

REPORT INFORMATION
  Report Type: 
  Country: None (occurrence: None)
  Receive Date: 20111013
  Receipt Date: 20111007
  Transmission Date: 20120403
  Serious: Yes (Death)
  Sender: FDA-Public Use
  Company Number: 2011SP003421

PATIENT
  Age: 53 Year
  Sex: Male
  Weight: 66.2 kg

DRUGS (6)
  1. BENZTROPINE MESYLATE [Concomitant]
  2. MIRTAZAPINE [Concomitant]
  3. ZOLPIDEM [Concomitant]
  4. LATUDA [Suspect]
     Indication: SCHIZOPHRENIA
     Dosage: 40 MG;QD;ORAL 80 MG;QD;ORAL
     Route: 048
     Dates: start: 20110921, end: 20110926
  5. LATUDA [Suspect]
     Indication: SCHIZOPHRENIA
     Dosage: 40 MG;QD;ORAL 80 MG;QD;ORAL
     Route: 048
     Dates: start: 20110927, end: 20111004
  6. RISPERIDONE [Suspect]
     Indication: SCHIZOPHRENIA
     Dates: end: 20110929

REACTIONS (4)
  - DYSTONIA [None]
  - CONDITION AGGRAVATED [None]
  - PANIC ATTACK [None]
  - ANXIETY [None]
